FAERS Safety Report 10017202 (Version 2)
Quarter: 2014Q1

REPORT INFORMATION
  Report Type: Spontaneous
  Country: ZA (occurrence: ZA)
  Receive Date: 20140318
  Receipt Date: 20140327
  Transmission Date: 20141002
  Serious: Yes (Other)
  Sender: FDA-Public Use
  Company Number: ZA-ASTRAZENECA-2014SE17816

PATIENT
  Age: 38 Year
  Sex: Male

DRUGS (4)
  1. SEROQUEL [Suspect]
     Indication: MAJOR DEPRESSION
     Route: 048
     Dates: start: 2013, end: 201403
  2. SEROQUEL [Suspect]
     Indication: MAJOR DEPRESSION
     Route: 048
     Dates: start: 2013, end: 201403
  3. WELLBUTRIN [Concomitant]
     Route: 048
  4. FLUVOXAMINE [Concomitant]
     Route: 048

REACTIONS (6)
  - Hepatic steatosis [Recovering/Resolving]
  - Hyperviscosity syndrome [Recovering/Resolving]
  - Blood triglycerides increased [Recovering/Resolving]
  - Malaise [Recovering/Resolving]
  - Weight decreased [Unknown]
  - Malaise [Unknown]
